FAERS Safety Report 9895999 (Version 1)
Quarter: 2014Q1

REPORT INFORMATION
  Report Type: Spontaneous
  Country: US (occurrence: US)
  Receive Date: 20140213
  Receipt Date: 20140213
  Transmission Date: 20141002
  Serious: No
  Sender: FDA-Public Use
  Company Number: US-BRISTOL-MYERS SQUIBB COMPANY-18777458

PATIENT
  Sex: Female

DRUGS (1)
  1. ORENCIA [Suspect]
     Dosage: DURATION THERAPY- 3 OR 4 WEEKS

REACTIONS (2)
  - Drug ineffective [Unknown]
  - Alopecia [Unknown]
